FAERS Safety Report 6172596-3 (Version None)
Quarter: 2009Q2

REPORT INFORMATION
  Report Type: 
  Country: None (occurrence: None)
  Receive Date: 20090428
  Receipt Date: 20090419
  Transmission Date: 20091009
  Serious: Yes (Other)
  Sender: FDA-Public Use
  Company Number: 252665

PATIENT
  Age: 52 Year
  Sex: Female
  Weight: 62 kg

DRUGS (17)
  1. FENTANYL [Suspect]
     Indication: INDUCTION OF ANAESTHESIA
     Dosage: 100 MCG, INTRAVENOUS; (AS NEEDED) INTRAVENOUS
     Route: 042
  2. FENTANYL [Suspect]
     Indication: MAINTENANCE OF ANAESTHESIA
     Dosage: 100 MCG, INTRAVENOUS; (AS NEEDED) INTRAVENOUS
     Route: 042
  3. HYDROMORPHONE HCL [Suspect]
     Indication: DRUG USE FOR UNKNOWN INDICATION
     Dosage: .5 MG, INTRAVENOUS
     Route: 042
  4. PROPOFOL [Suspect]
     Indication: INDUCTION OF ANAESTHESIA
     Dosage: 190 MG, INTRAVENOUS
     Route: 042
  5. (DESFLURANE) [Suspect]
     Indication: MAINTENANCE OF ANAESTHESIA
     Dosage: 4% TO 5% END-TIDAL, INHALATION
     Route: 055
  6. METOPROLOL SUCCINATE [Concomitant]
  7. AMLODIPINE [Concomitant]
  8. (ATORVASTATIN) [Concomitant]
  9. MIDAZOLAM HCL [Concomitant]
  10. VECURONIUM BROMIDE [Concomitant]
  11. (OXYGEN) [Concomitant]
  12. (EPHEDRINE) [Concomitant]
  13. (PHENYLEPHRINE) [Concomitant]
  14. ESMOLOL HCL [Concomitant]
  15. LABETALOL HCL [Concomitant]
  16. (NEOSTIGMINE) [Concomitant]
  17. (GLYCOPYRROLATE /00196202/) [Concomitant]

REACTIONS (3)
  - CONDITION AGGRAVATED [None]
  - HEMIPLEGIA [None]
  - MUSCULAR WEAKNESS [None]
